FAERS Safety Report 7389593-2 (Version None)
Quarter: 2011Q2

REPORT INFORMATION
  Report Type: 
  Country: None (occurrence: None)
  Receive Date: 20110401
  Receipt Date: 20110318
  Transmission Date: 20111010
  Serious: Yes (Death)
  Sender: FDA-Public Use
  Company Number: US-CELGENEUS-163-21880-10110024

PATIENT
  Sex: Male
  Weight: 99.426 kg

DRUGS (32)
  1. REVLIMID [Suspect]
     Indication: MULTIPLE MYELOMA
     Dosage: 25 MILLIGRAM
     Route: 048
     Dates: start: 20071123
  2. DEXMETHASONE [Concomitant]
     Dosage: 20 MILLIGRAM
     Route: 048
     Dates: start: 20101201
  3. VELCADE [Concomitant]
     Dosage: 2.4 MILLIGRAM
     Route: 051
  4. ASPIRIN [Concomitant]
     Dosage: 325
     Route: 048
  5. VITAMIN D [Concomitant]
     Dosage: 1000
     Route: 048
  6. STOOL SOFTENER LAXATIVE [Concomitant]
     Dosage: 8.6-50MG
     Route: 048
  7. PLATELETS [Concomitant]
     Route: 065
  8. REVLIMID [Suspect]
     Dosage: 15 MILLIGRAM
     Route: 048
     Dates: start: 20090201
  9. NEURONTIN [Concomitant]
     Dosage: 400 MILLIGRAM
     Route: 048
     Dates: start: 20100923
  10. MAGIC MOUTHWASH [Concomitant]
     Dosage: 15 MILLILITER
     Route: 048
     Dates: start: 20101006
  11. PREDNISONE TAB [Concomitant]
     Dosage: 20 MILLIGRAM
     Route: 048
     Dates: start: 20101122
  12. AIRBORNE [Concomitant]
     Dosage: 1 DOSAGE FORMS
     Route: 065
  13. ZOMETA [Concomitant]
     Route: 065
  14. MELPHALAN [Concomitant]
     Dosage: 8 MILLIGRAM
     Route: 065
  15. LOPRESSOR [Concomitant]
     Dosage: 50
     Route: 048
  16. PROCRIT [Concomitant]
     Dosage: 40,000-60,000 UNITS
     Route: 051
  17. HUMULIN R [Concomitant]
     Route: 065
     Dates: start: 20100526
  18. CLOTRIMAZOLE AND BETAMETHASONE DIPROPIONATE [Concomitant]
     Dosage: 1-0.05%
     Route: 061
     Dates: start: 20101103
  19. FUROSEMIDE [Concomitant]
     Indication: SWELLING
     Dosage: 40 MILLIGRAM
     Route: 048
     Dates: start: 20101217
  20. FUROSEMIDE [Concomitant]
     Dosage: 20 MILLIGRAM
     Route: 051
  21. CHERATUSSIN AC [Concomitant]
     Indication: COUGH
     Dosage: 10 MILLILITER
     Route: 048
     Dates: start: 20101216
  22. PERCOCET [Concomitant]
     Dosage: 5/325MG
     Route: 048
     Dates: start: 20110106
  23. RED BLOOD CELLS [Concomitant]
     Route: 065
  24. DEXMETHASONE [Concomitant]
     Dosage: 4 MILLIGRAM
     Route: 048
     Dates: start: 20101213, end: 20101201
  25. ALLOPURINOL [Concomitant]
     Dosage: 300
     Route: 048
     Dates: start: 20091222
  26. ZOFRAN [Concomitant]
     Dosage: 8 MILLIGRAM
     Route: 051
  27. PANTOPRAZOLE [Concomitant]
     Dosage: 40
     Route: 048
  28. REVLIMID [Suspect]
     Dosage: 25 MILLIGRAM
     Route: 048
     Dates: start: 20080801
  29. DIOVAN [Concomitant]
     Dosage: 80
     Route: 048
  30. PROCHLORPERAZINE [Concomitant]
     Indication: NAUSEA
     Dosage: 10 MILLIGRAM
     Route: 048
     Dates: start: 20100928
  31. LODRANE [Concomitant]
     Dosage: 12-90MG
     Route: 048
  32. NORMAL SALINE [Concomitant]
     Route: 065

REACTIONS (4)
  - DRUG INEFFECTIVE [None]
  - MULTIPLE MYELOMA [None]
  - EPISTAXIS [None]
  - CONFUSIONAL STATE [None]
